FAERS Safety Report 13105918 (Version 1)
Quarter: 2017Q1

REPORT INFORMATION
  Report Type: Spontaneous
  Country: SI (occurrence: SI)
  Receive Date: 20170111
  Receipt Date: 20170111
  Transmission Date: 20170428
  Serious: Yes (Hospitalization)
  Sender: FDA-Public Use
  Company Number: SI-JNJFOC-20170107380

PATIENT
  Age: 52 Year
  Sex: Female
  Weight: 80 kg

DRUGS (5)
  1. NAPROSYN [Concomitant]
     Active Substance: NAPROXEN
     Dosage: 500 MG AS NEEDED
     Route: 065
  2. CYMBALTA [Concomitant]
     Active Substance: DULOXETINE HYDROCHLORIDE
     Route: 065
  3. SIMPONI [Suspect]
     Active Substance: GOLIMUMAB
     Indication: PSORIATIC ARTHROPATHY
     Route: 058
     Dates: start: 20160624
  4. METHYLPREDNISOLONE. [Concomitant]
     Active Substance: METHYLPREDNISOLONE
     Route: 065
  5. WELLBUTRIN [Concomitant]
     Active Substance: BUPROPION HYDROCHLORIDE
     Route: 065

REACTIONS (1)
  - Lower respiratory tract infection bacterial [Recovered/Resolved]

NARRATIVE: CASE EVENT DATE: 20161124
